FAERS Safety Report 5503589-4 (Version None)
Quarter: 2007Q4

REPORT INFORMATION
  Report Type: 
  Country: None (occurrence: None)
  Receive Date: 20071029
  Receipt Date: 20071023
  Transmission Date: 20080405
  Serious: Yes (Death, Hospitalization)
  Sender: FDA-Public Use
  Company Number: 056-C5013-07090099

PATIENT
  Age: 74 Year
  Sex: Female
  Weight: 70 kg

DRUGS (4)
  1. CC-5013 (LENALIDOMIDE) (CAPSULES) [Suspect]
     Indication: MULTIPLE MYELOMA
     Dosage: 25 MG, DAILY, ORAL; 15 MG, DAILY, ORAL
     Route: 048
     Dates: start: 20070710, end: 20070717
  2. CC-5013 (LENALIDOMIDE) (CAPSULES) [Suspect]
     Indication: MULTIPLE MYELOMA
     Dosage: 25 MG, DAILY, ORAL; 15 MG, DAILY, ORAL
     Route: 048
     Dates: start: 20070807, end: 20070817
  3. DEXAMETHASONE TAB [Concomitant]
  4. EXACYL (TRANEXAMIC ACID) [Concomitant]

REACTIONS (10)
  - BLOOD CULTURE POSITIVE [None]
  - ESCHERICHIA INFECTION [None]
  - HAEMATURIA [None]
  - HAEMORRHAGE [None]
  - MALIGNANT NEOPLASM PROGRESSION [None]
  - METABOLIC DISORDER [None]
  - MULTIPLE MYELOMA [None]
  - PATHOGEN RESISTANCE [None]
  - RENAL FAILURE [None]
  - STREPTOCOCCAL INFECTION [None]
